FAERS Safety Report 16576419 (Version 1)
Quarter: 2019Q3

REPORT INFORMATION
  Report Type: Spontaneous
  Country: DE (occurrence: DE)
  Receive Date: 20190716
  Receipt Date: 20190716
  Transmission Date: 20191004
  Serious: Yes (Hospitalization, Other)
  Sender: FDA-Public Use
  Company Number: DE-TEVA-2019-DE-1077137

PATIENT
  Age: 83 Year
  Sex: Female

DRUGS (4)
  1. ASS 100 [Suspect]
     Active Substance: ASPIRIN
     Dosage: 100 MG, 0-1-1-0
     Route: 065
  2. VIGANTOLETTEN 1000I.E. [Concomitant]
     Dosage: 1000 IE, NK
  3. METOPROLOL. [Concomitant]
     Active Substance: METOPROLOL
     Dosage: 47.5 MG, 0.5-0-0-0
  4. CIPROFLOXACIN. [Suspect]
     Active Substance: CIPROFLOXACIN
     Dosage: NK MG, ALREADY DISCONTINUED; DATE NOT KNOWN
     Route: 065

REACTIONS (2)
  - Abdominal pain lower [Unknown]
  - Haematochezia [Unknown]
